FAERS Safety Report 6346249-2 (Version None)
Quarter: 2009Q3

REPORT INFORMATION
  Report Type: 
  Country: None (occurrence: None)
  Receive Date: 20090909
  Receipt Date: 20090904
  Transmission Date: 20100115
  Serious: Yes (Hospitalization)
  Sender: FDA-Public Use
  Company Number: PHHO2009AU10919

PATIENT
  Sex: Male
  Weight: 85 kg

DRUGS (7)
  1. BLINDED ALISKIREN ALI+TAB [Suspect]
     Indication: CORONARY ARTERY DISEASE
     Dosage: DOUBLE-BLIND
     Route: 048
     Dates: start: 20090803
  2. BLINDED NO TREATMENT RECEIVED NOMED [Suspect]
     Indication: CORONARY ARTERY DISEASE
     Dosage: DOUBLE-BLIND
     Route: 048
     Dates: start: 20090803
  3. BLINDED PLACEBO COMP-PLA+ [Suspect]
     Indication: CORONARY ARTERY DISEASE
     Dosage: DOUBLE-BLIND
     Route: 048
     Dates: start: 20090803
  4. ALISKIREN [Suspect]
     Indication: CORONARY ARTERY DISEASE
     Dosage: SINGLE-BLIND
     Route: 048
  5. AMLODIPINE [Concomitant]
  6. MOXONIDINE [Concomitant]
  7. ASPIRIN [Concomitant]

REACTIONS (2)
  - ORTHOSTATIC HYPOTENSION [None]
  - SYNCOPE [None]
